FAERS Safety Report 22616844 (Version 1)
Quarter: 2023Q2

REPORT INFORMATION
  Report Type: Spontaneous
  Country: FR (occurrence: FR)
  Receive Date: 20230619
  Receipt Date: 20230619
  Transmission Date: 20230721
  Serious: Yes (Other)
  Sender: FDA-Public Use
  Company Number: FR-MALLINCKRODT-MNK202302375

PATIENT
  Age: 54 Year
  Sex: Female

DRUGS (2)
  1. UVADEX [Suspect]
     Active Substance: METHOXSALEN
     Indication: Cutaneous T-cell lymphoma
     Dosage: UNKNOWN
     Route: 050
     Dates: start: 2022
  2. ANTICOAGULANT CITRATE DEXTROSE SOLUTION (ACD) NOS [Concomitant]
     Active Substance: CITRIC ACID MONOHYDRATE\DEXTROSE\SODIUM CITRATE
     Dosage: UNKNOWN (A/C RATIO 10:1)

REACTIONS (5)
  - Thrombosis in device [Unknown]
  - Inflammation [Unknown]
  - Poor venous access [Unknown]
  - Vessel puncture site haematoma [Unknown]
  - Anxiety [Unknown]
